FAERS Safety Report 18541949 (Version 1)
Quarter: 2020Q4

REPORT INFORMATION
  Report Type: Spontaneous
  Country: US (occurrence: US)
  Receive Date: 20201125
  Receipt Date: 20201125
  Transmission Date: 20210114
  Serious: No
  Sender: FDA-Public Use
  Company Number: US-ACCORD-198078

PATIENT

DRUGS (1)
  1. BUPROPRION ACCORD [Suspect]
     Active Substance: BUPROPION HYDROCHLORIDE
     Indication: PRODUCT USED FOR UNKNOWN INDICATION
     Dosage: STRENGTH 150MG

REACTIONS (2)
  - Drug ineffective [Unknown]
  - Product odour abnormal [Unknown]
